FAERS Safety Report 13478304 (Version 2)
Quarter: 2018Q2

REPORT INFORMATION
  Report Type: Spontaneous
  Country: US (occurrence: US)
  Receive Date: 20170425
  Receipt Date: 20180426
  Transmission Date: 20180711
  Serious: Yes (Hospitalization)
  Sender: FDA-Public Use
  Company Number: US-BAUSCH-BL-2017-010796

PATIENT
  Age: 82 Year
  Sex: Male

DRUGS (1)
  1. XIFAXAN [Suspect]
     Active Substance: RIFAXIMIN
     Indication: PRODUCT USED FOR UNKNOWN INDICATION
     Dosage: TAKING IT FOR 2 YEARS NOW
     Route: 065
     Dates: start: 2016

REACTIONS (9)
  - Pneumonia [Unknown]
  - Joint injury [Unknown]
  - Dyspnoea [Unknown]
  - Internal haemorrhage [Unknown]
  - Fall [Unknown]
  - Gait disturbance [Unknown]
  - Sepsis [Unknown]
  - Head injury [Unknown]
  - Ocular hyperaemia [Unknown]

NARRATIVE: CASE EVENT DATE: 201702
